FAERS Safety Report 7761627-2 (Version None)
Quarter: 2011Q3

REPORT INFORMATION
  Report Type: 
  Country: None (occurrence: None)
  Receive Date: 20110920
  Receipt Date: 20110912
  Transmission Date: 20111222
  Serious: Yes (Life-Threatening)
  Sender: FDA-Public Use
  Company Number: FR-ASTELLAS-2011EU001560

PATIENT
  Age: 9 Year
  Sex: Male
  Weight: 32 kg

DRUGS (2)
  1. MICAFUNGIN INJECTION [Suspect]
     Indication: ANTIFUNGAL PROPHYLAXIS
     Dosage: 32 MG, UNKNOWN/D
     Route: 042
     Dates: start: 20110217, end: 20110224
  2. MICAFUNGIN INJECTION [Suspect]
     Indication: FUNGAL INFECTION

REACTIONS (3)
  - PNEUMOCYSTIS JIROVECI PNEUMONIA [None]
  - RESPIRATORY DISTRESS [None]
  - PYREXIA [None]
